FAERS Safety Report 12091261 (Version 1)
Quarter: 2016Q1

REPORT INFORMATION
  Report Type: Spontaneous
  Country: US (occurrence: US)
  Receive Date: 20160218
  Receipt Date: 20160218
  Transmission Date: 20160526
  Serious: Yes (Hospitalization)
  Sender: FDA-Public Use
  Company Number: US-MYLANLABS-2016M1005917

PATIENT

DRUGS (2)
  1. HALDOL [Concomitant]
     Active Substance: HALOPERIDOL
     Dosage: UNK
     Dates: start: 201601
  2. METOPROLOL. [Suspect]
     Active Substance: METOPROLOL
     Indication: BLOOD PRESSURE MANAGEMENT
     Dosage: 25 MG, BID
     Route: 048
     Dates: start: 20160115, end: 201601

REACTIONS (3)
  - Drug ineffective [Recovered/Resolved]
  - Paranoia [Recovered/Resolved]
  - Illogical thinking [Recovered/Resolved]

NARRATIVE: CASE EVENT DATE: 20160115
